FAERS Safety Report 8619975-X (Version None)
Quarter: 2012Q3

REPORT INFORMATION
  Report Type: 
  Country: None (occurrence: None)
  Receive Date: 20120824
  Receipt Date: 20120815
  Transmission Date: 20120928
  Serious: Yes (Hospitalization, Other)
  Sender: FDA-Public Use
  Company Number: MX-ELI_LILLY_AND_COMPANY-MX201109002389

PATIENT
  Age: 15 Year
  Sex: Female
  Weight: 68 kg

DRUGS (9)
  1. OMEPRAZOLE [Concomitant]
     Dosage: 1 DF, QD
  2. AMOXICILLIN AND CLAVULANATE POTASSIUM [Concomitant]
     Dosage: 800 MG, BID
  3. CLONAZEPAM [Concomitant]
     Dosage: 6 DF, EACH EVENING
  4. ZYPREXA [Suspect]
     Dosage: 10 MG, QD
     Route: 048
     Dates: start: 20110402
  5. LAMOTRIGINE [Concomitant]
     Dosage: 1 DF, EACH MORNING
  6. LAMOTRIGINE [Concomitant]
     Dosage: 100 MG, QD
  7. TAPAZOL [Concomitant]
     Dosage: 5 MG, UNK
  8. ZYPREXA [Suspect]
     Indication: BIPOLAR DISORDER
     Dosage: 15 MG, QD
     Route: 048
  9. TAPAZOL [Concomitant]
     Dosage: 25 MG, QD
     Dates: start: 20070101

REACTIONS (20)
  - ABNORMAL BEHAVIOUR [None]
  - NASAL TURBINATE ABNORMALITY [None]
  - HYPOTHYROIDISM [None]
  - OFF LABEL USE [None]
  - HYPERTHYROIDISM [None]
  - DRUG DOSE OMISSION [None]
  - DYSPNOEA [None]
  - STRESS [None]
  - HEART RATE INCREASED [None]
  - JOINT INJURY [None]
  - THROMBOCYTOPENIC PURPURA [None]
  - CONDITION AGGRAVATED [None]
  - VISION BLURRED [None]
  - EYE SWELLING [None]
  - WRONG TECHNIQUE IN DRUG USAGE PROCESS [None]
  - ARTHRALGIA [None]
  - PLATELET COUNT DECREASED [None]
  - HEADACHE [None]
  - MEMORY IMPAIRMENT [None]
  - VISUAL IMPAIRMENT [None]
